FAERS Safety Report 4717396-3 (Version None)
Quarter: 2005Q3

REPORT INFORMATION
  Report Type: 
  Country: None (occurrence: None)
  Receive Date: 20050711
  Receipt Date: 20050506
  Transmission Date: 20060218
  Serious: No
  Sender: FDA-Public Use
  Company Number: A03200501384

PATIENT
  Age: 61 Year
  Sex: Male

DRUGS (2)
  1. UROXATRAL [Suspect]
     Indication: DYSURIA
     Dosage: 10 MG OD - ORAL
     Route: 048
     Dates: start: 20050404
  2. SERTRALINE HYDROCHLORIDE [Concomitant]

REACTIONS (3)
  - DISORIENTATION [None]
  - INSOMNIA [None]
  - MEDICATION RESIDUE [None]
